FAERS Safety Report 10906988 (Version 2)
Quarter: 2015Q1

REPORT INFORMATION
  Report Type: Spontaneous
  Country: CA (occurrence: CA)
  Receive Date: 20150312
  Receipt Date: 20150316
  Transmission Date: 20150721
  Serious: No
  Sender: FDA-Public Use
  Company Number: CA-JNJFOC-20150117844

PATIENT
  Sex: Female

DRUGS (1)
  1. INVEGA [Suspect]
     Active Substance: PALIPERIDONE
     Indication: PRODUCT USED FOR UNKNOWN INDICATION
     Route: 048

REACTIONS (6)
  - Hallucination, auditory [Unknown]
  - Somnolence [Unknown]
  - Product quality issue [Unknown]
  - Irritability [Unknown]
  - Urinary incontinence [Unknown]
  - Pain [Unknown]
